FAERS Safety Report 4719617-X (Version None)
Quarter: 2005Q3

REPORT INFORMATION
  Report Type: 
  Country: None (occurrence: None)
  Receive Date: 20050721
  Receipt Date: 20040413
  Transmission Date: 20060218
  Serious: No
  Sender: FDA-Public Use
  Company Number: US-GLAXOSMITHKLINE-A0508228A

PATIENT
  Sex: Female

DRUGS (8)
  1. AVANDIA [Suspect]
     Dosage: 4MG PER DAY
     Route: 048
     Dates: start: 20000310
  2. AMARYL [Concomitant]
     Dosage: 4MG PER DAY
     Route: 048
     Dates: start: 19990208
  3. GLUCOPHAGE [Concomitant]
     Dosage: 1000MG TWICE PER DAY
     Route: 048
     Dates: start: 19960424, end: 20000929
  4. HYDROCHLOROTHIAZIDE [Concomitant]
     Dosage: 25MG PER DAY
     Route: 048
  5. MONOPRIL [Concomitant]
     Dosage: 20MG PER DAY
     Route: 048
  6. LANOXIN [Concomitant]
     Dosage: 1.25MG PER DAY
     Route: 048
  7. GLUCOVANCE [Concomitant]
     Dosage: 2.5MG TWICE PER DAY
     Route: 048
     Dates: start: 20000929
  8. TOPROL-XL [Concomitant]
     Indication: DRUG USE FOR UNKNOWN INDICATION
     Dosage: 25MG TWICE PER DAY
     Route: 048

REACTIONS (1)
  - ADVERSE EVENT [None]
